FAERS Safety Report 22362013 (Version 2)
Quarter: 2023Q2

REPORT INFORMATION
  Report Type: Spontaneous
  Country: US (occurrence: US)
  Receive Date: 20230524
  Receipt Date: 20230526
  Transmission Date: 20230722
  Serious: Yes (Other)
  Sender: FDA-Public Use
  Company Number: US-PFIZER INC-202300197464

PATIENT
  Age: 88 Year
  Sex: Female
  Weight: 56.25 kg

DRUGS (3)
  1. LORBRENA [Suspect]
     Active Substance: LORLATINIB
     Indication: Non-small cell lung cancer
     Dosage: 100 MG, 1X/DAY
     Dates: start: 202304
  2. LORBRENA [Suspect]
     Active Substance: LORLATINIB
     Dosage: 100 MG, 2X/WEEK
     Dates: start: 20230519
  3. TOBRAMYCIN AND DEXAMETHASONE [Concomitant]
     Active Substance: DEXAMETHASONE\TOBRAMYCIN
     Dosage: UNK, 3X/DAY (1 DROP THREE TIMES A DAY TO BOTH EYES)
     Route: 047
     Dates: start: 20230517

REACTIONS (8)
  - Deafness [Unknown]
  - Thrombosis [Unknown]
  - Peripheral swelling [Unknown]
  - Ocular discomfort [Unknown]
  - Dry eye [Unknown]
  - Eye disorder [Unknown]
  - Illness [Unknown]
  - Accidental overdose [Unknown]

NARRATIVE: CASE EVENT DATE: 20230519
